APPROVED DRUG PRODUCT: CYCLOBENZAPRINE HYDROCHLORIDE
Active Ingredient: CYCLOBENZAPRINE HYDROCHLORIDE
Strength: 5MG
Dosage Form/Route: TABLET;ORAL
Application: A208170 | Product #001 | TE Code: AB
Applicant: RUBICON RESEARCH LTD
Approved: May 31, 2017 | RLD: No | RS: No | Type: RX